FAERS Safety Report 10704951 (Version 1)
Quarter: 2015Q1

REPORT INFORMATION
  Report Type: Spontaneous
  Country: US (occurrence: None)
  Receive Date: 20150108
  Receipt Date: 20150108
  Transmission Date: 20150721
  Serious: Yes (Hospitalization, Other)
  Sender: FDA-Public Use
  Company Number: 2015SA000973

PATIENT
  Sex: Female

DRUGS (1)
  1. CORTIZONE 10 [Suspect]
     Active Substance: HYDROCORTISONE
     Indication: ARTHROPOD BITE
     Dosage: UNKNOWN
     Dates: start: 201305

REACTIONS (3)
  - Cellulitis [None]
  - Infection [None]
  - Wrong technique in drug usage process [None]

NARRATIVE: CASE EVENT DATE: 201501
